FAERS Safety Report 19403612 (Version 2)
Quarter: 2021Q2

REPORT INFORMATION
  Report Type: Report from Study
  Country: MX (occurrence: MX)
  Receive Date: 20210611
  Receipt Date: 20210624
  Transmission Date: 20210717
  Serious: Yes (Hospitalization, Other)
  Sender: FDA-Public Use
  Company Number: NVSC2021MX130389

PATIENT
  Age: 76 Year
  Sex: Female
  Weight: 61 kg

DRUGS (5)
  1. ELATEC [Concomitant]
     Indication: CARDIOVASCULAR DISORDER
     Dosage: 1 DF, QW
     Route: 048
     Dates: start: 202102
  2. GALVUS MET [Suspect]
     Active Substance: METFORMIN HYDROCHLORIDE\VILDAGLIPTIN
     Indication: DIABETES MELLITUS
     Dosage: 1 DF, QD
     Route: 048
     Dates: start: 20201209
  3. PRAVASTATIN. [Concomitant]
     Active Substance: PRAVASTATIN
     Indication: WEIGHT INCREASED
     Dosage: 1 DF, QD (8 YEARS AGO)
     Route: 048
  4. PENTASA [Concomitant]
     Active Substance: MESALAMINE
     Indication: ABDOMINAL DISTENSION
     Dosage: 1 DF, QD (4 YEARS AGO)
     Route: 048
  5. IPRATROPIUM BROMIDE. [Concomitant]
     Active Substance: IPRATROPIUM BROMIDE
     Indication: RESPIRATORY DISORDER
     Dosage: 2 SHOTS IN THE MORNING AND 2 SHOTS AT NIGHT
     Route: 055
     Dates: start: 202012

REACTIONS (4)
  - Speech disorder [Recovering/Resolving]
  - Memory impairment [Recovering/Resolving]
  - Angina unstable [Recovered/Resolved]
  - Cerebrovascular accident [Recovered/Resolved]

NARRATIVE: CASE EVENT DATE: 20210526
